FAERS Safety Report 9424423 (Version 1)
Quarter: 2013Q3

REPORT INFORMATION
  Report Type: Spontaneous
  Country: US (occurrence: None)
  Receive Date: 20130726
  Receipt Date: 20130726
  Transmission Date: 20140515
  Serious: Yes (Other)
  Sender: FDA-Public Use
  Company Number: None

PATIENT
  Age: 73 Year
  Sex: Male
  Weight: 137.89 kg

DRUGS (9)
  1. JANUVIA 100 MG [Suspect]
     Indication: DIABETES MELLITUS INADEQUATE CONTROL
     Route: 048
  2. ATORVASTATIN [Concomitant]
  3. COUMADIN [Concomitant]
  4. LASIX [Concomitant]
  5. KC1 [Concomitant]
  6. METOPROLOL [Concomitant]
  7. METFORMIN [Concomitant]
  8. LANTUS [Concomitant]
  9. LOSARTAN [Concomitant]

REACTIONS (2)
  - Intraductal papillary mucinous neoplasm [None]
  - Pancreatic neoplasm [None]
